FAERS Safety Report 23574826 (Version 1)
Quarter: 2024Q1

REPORT INFORMATION
  Report Type: Spontaneous
  Country: US (occurrence: US)
  Receive Date: 20240228
  Receipt Date: 20240228
  Transmission Date: 20240409
  Serious: No
  Sender: FDA-Public Use
  Company Number: US-GSKCCFUS-Case-01470387_AE-84103

PATIENT
  Age: 55 Year
  Sex: Female

DRUGS (4)
  1. NUCALA [Suspect]
     Active Substance: MEPOLIZUMAB
     Indication: Eosinophilic granulomatosis with polyangiitis
     Dosage: 300 MG
     Dates: start: 20220721
  2. NUCALA [Suspect]
     Active Substance: MEPOLIZUMAB
     Dosage: 100 MG
  3. NUCALA [Suspect]
     Active Substance: MEPOLIZUMAB
     Indication: Eosinophilic granulomatosis with polyangiitis
     Dosage: 300 MG
  4. NUCALA [Suspect]
     Active Substance: MEPOLIZUMAB

REACTIONS (8)
  - Headache [Unknown]
  - Herpes simplex [Unknown]
  - Fatigue [Unknown]
  - Pain [Unknown]
  - Exposure via eye contact [Unknown]
  - Accidental exposure to product [Unknown]
  - Product dose omission in error [Unknown]
  - Product complaint [Unknown]

NARRATIVE: CASE EVENT DATE: 20220801
